FAERS Safety Report 20621998 (Version 1)
Quarter: 2022Q1

REPORT INFORMATION
  Report Type: Spontaneous
  Country: US (occurrence: US)
  Receive Date: 20220322
  Receipt Date: 20220322
  Transmission Date: 20220423
  Serious: Yes (Hospitalization, Other)
  Sender: FDA-Public Use
  Company Number: US-PFIZER INC-202200409698

PATIENT
  Age: 57 Year
  Sex: Female

DRUGS (1)
  1. HEPARIN SODIUM [Suspect]
     Active Substance: HEPARIN SODIUM
     Dosage: FULL DOSE
     Route: 042

REACTIONS (2)
  - Heparin-induced thrombocytopenia [Recovering/Resolving]
  - Renal impairment [Recovering/Resolving]
